FAERS Safety Report 25969572 (Version 1)
Quarter: 2025Q4

REPORT INFORMATION
  Report Type: Spontaneous
  Country: US (occurrence: US)
  Receive Date: 20251028
  Receipt Date: 20251028
  Transmission Date: 20260117
  Serious: No
  Sender: CIPLA
  Company Number: US-CIPLA LTD.-2025US13531

PATIENT

DRUGS (2)
  1. TESTOSTERONE [Suspect]
     Active Substance: TESTOSTERONE
     Indication: Product used for unknown indication
     Dosage: UNK, REGULAR USER
     Route: 065
  2. TESTOSTERONE [Suspect]
     Active Substance: TESTOSTERONE
     Dosage: UNK,
     Route: 065
     Dates: start: 202510

REACTIONS (3)
  - Pain in extremity [Unknown]
  - Suspected counterfeit product [Unknown]
  - Product formulation issue [Unknown]

NARRATIVE: CASE EVENT DATE: 20251001
